FAERS Safety Report 7035801-7 (Version None)
Quarter: 2010Q4

REPORT INFORMATION
  Report Type: 
  Country: None (occurrence: None)
  Receive Date: 20101008
  Receipt Date: 20101001
  Transmission Date: 20110411
  Serious: Yes (Death, Hospitalization, Other)
  Sender: FDA-Public Use
  Company Number: US-AMGEN-QUU405524

PATIENT
  Sex: Male

DRUGS (3)
  1. NPLATE [Suspect]
     Indication: IDIOPATHIC THROMBOCYTOPENIC PURPURA
     Dates: start: 20090401, end: 20090626
  2. UNSPECIFIED MEDICATION [Concomitant]
  3. CORTICOSTEROIDS [Concomitant]
     Dates: start: 20091129

REACTIONS (4)
  - ANAPHYLACTIC REACTION [None]
  - DRUG INEFFECTIVE [None]
  - HEPATITIS B [None]
  - HIV INFECTION [None]
